FAERS Safety Report 25111553 (Version 2)
Quarter: 2025Q1

REPORT INFORMATION
  Report Type: Spontaneous
  Country: GB (occurrence: GB)
  Receive Date: 20250324
  Receipt Date: 20250328
  Transmission Date: 20250409
  Serious: Yes (Hospitalization, Other)
  Sender: MYLAN
  Company Number: GB-MYLANLABS-2025M1018169

PATIENT
  Age: 38 Year
  Sex: Male

DRUGS (1)
  1. CLOZARIL [Suspect]
     Active Substance: CLOZAPINE
     Indication: Schizophrenia
     Dosage: 125 MILLIGRAM, BID (TWICE DAILY)
     Dates: start: 20250211, end: 20250314

REACTIONS (2)
  - Eosinophilia [Recovering/Resolving]
  - Rebound psychosis [Unknown]

NARRATIVE: CASE EVENT DATE: 20250317
